FAERS Safety Report 15360432 (Version 1)
Quarter: 2018Q3

REPORT INFORMATION
  Report Type: Spontaneous
  Country: US (occurrence: US)
  Receive Date: 20180831
  Receipt Date: 20180831
  Transmission Date: 20181010
  Serious: No
  Sender: FDA-Public Use
  Company Number: None

PATIENT
  Age: 35 Year
  Sex: Male
  Weight: 113.4 kg

DRUGS (1)
  1. TALTZ [Suspect]
     Active Substance: IXEKIZUMAB
     Indication: PSORIASIS
     Dosage: INJECTED 80MG (1 PEN) SUBCUTANEOUSLY EVERY 4 WEEKS AS DIRECTED
     Route: 058
     Dates: start: 201807

REACTIONS (4)
  - Therapy cessation [None]
  - Blister [None]
  - Pain [None]
  - Scab [None]
